FAERS Safety Report 8849050 (Version 1)
Quarter: 2012Q4

REPORT INFORMATION
  Report Type: Spontaneous
  Country: US (occurrence: None)
  Receive Date: 20121017
  Receipt Date: 20121017
  Transmission Date: 20130627
  Serious: No
  Sender: FDA-Public Use
  Company Number: None

PATIENT
  Sex: Female

DRUGS (1)
  1. OXYCODONE / ACETAMINOPHEN [Suspect]
     Route: 048
     Dates: start: 20121011

REACTIONS (2)
  - Product quality issue [None]
  - Drug effect decreased [None]
